FAERS Safety Report 8546776-3 (Version None)
Quarter: 2012Q3

REPORT INFORMATION
  Report Type: 
  Country: None (occurrence: None)
  Receive Date: 20120727
  Receipt Date: 20120208
  Transmission Date: 20120928
  Serious: No
  Sender: FDA-Public Use
  Company Number: US-ASTRAZENECA-2012SE08922

PATIENT
  Age: 14 Year
  Sex: Male

DRUGS (2)
  1. SEROQUEL XR [Suspect]
     Indication: AUTISM
     Route: 048
     Dates: start: 20090101
  2. SEROQUEL XR [Suspect]
     Indication: ATTENTION DEFICIT/HYPERACTIVITY DISORDER
     Route: 048
     Dates: start: 20090101

REACTIONS (4)
  - ABNORMAL BEHAVIOUR [None]
  - DRUG DOSE OMISSION [None]
  - OFF LABEL USE [None]
  - MALAISE [None]
